FAERS Safety Report 19691993 (Version 1)
Quarter: 2021Q3

REPORT INFORMATION
  Report Type: Spontaneous
  Country: FR (occurrence: FR)
  Receive Date: 20210812
  Receipt Date: 20210812
  Transmission Date: 20211014
  Serious: Yes (Hospitalization)
  Sender: FDA-Public Use
  Company Number: FR-TEVA-2021-FR-1940470

PATIENT
  Age: 61 Year
  Sex: Male
  Weight: 44 kg

DRUGS (23)
  1. RIFATER [Suspect]
     Active Substance: ISONIAZID\PYRAZINAMIDE\RIFAMPIN
     Indication: TUBERCULOSIS
     Dosage: 4DF
     Route: 065
     Dates: start: 20210420, end: 20210515
  2. ALIMTA [Suspect]
     Active Substance: PEMETREXED DISODIUM
     Dosage: CURE 3, 700MG
     Route: 065
     Dates: start: 20210625
  3. GELTIM [Concomitant]
     Active Substance: TIMOLOL MALEATE
  4. OXYNORM [Concomitant]
     Active Substance: OXYCODONE HYDROCHLORIDE
  5. PARACETAMOL [Concomitant]
     Active Substance: ACETAMINOPHEN
  6. ALIMTA [Suspect]
     Active Substance: PEMETREXED DISODIUM
     Indication: LUNG ADENOCARCINOMA STAGE IV
     Dosage: CURE 1, 700MG
     Route: 065
     Dates: start: 20210409
  7. PEMBROLIZUMAB MK?3475 50 MG, POUDRE POUR SOLUTION POUR PERFUSION [Suspect]
     Active Substance: PEMBROLIZUMAB
     Dosage: CURE 1, 200MG
     Route: 065
     Dates: start: 20210409
  8. VACCIN CONTRE LA COVID?19 MODERNA 0,20 MG/ML, SUSPENSION INJECTABLE ? [Concomitant]
  9. MOVICOL [Concomitant]
     Active Substance: POLYETHYLENE GLYCOL 3350\POTASSIUM CHLORIDE\SODIUM BICARBONATE\SODIUM CHLORIDE
  10. ATORVASTATINE [Concomitant]
     Active Substance: ATORVASTATIN
  11. RIFATER [Suspect]
     Active Substance: ISONIAZID\PYRAZINAMIDE\RIFAMPIN
     Dosage: 4DF
     Route: 065
     Dates: start: 20210630, end: 20210715
  12. SALBUTAMOL [Concomitant]
     Active Substance: ALBUTEROL
  13. ONDANSETRON [Concomitant]
     Active Substance: ONDANSETRON
  14. CARBOPLATINE [Suspect]
     Active Substance: CARBOPLATIN
     Dosage: CURE 3, 580MG
     Route: 065
     Dates: start: 20210625
  15. CARBOPLATINE [Suspect]
     Active Substance: CARBOPLATIN
     Indication: LUNG ADENOCARCINOMA STAGE IV
     Dosage: CURE 2, 510MG
     Route: 065
     Dates: start: 20210430
  16. ALIMTA [Suspect]
     Active Substance: PEMETREXED DISODIUM
     Dosage: CURE 2, 550MG
     Route: 065
     Dates: start: 20210430
  17. PEMBROLIZUMAB MK?3475 50 MG, POUDRE POUR SOLUTION POUR PERFUSION [Suspect]
     Active Substance: PEMBROLIZUMAB
     Indication: LUNG ADENOCARCINOMA STAGE IV
     Dosage: CURE 3, 200MG
     Route: 065
     Dates: start: 20210625
  18. PEMBROLIZUMAB MK?3475 50 MG, POUDRE POUR SOLUTION POUR PERFUSION [Suspect]
     Active Substance: PEMBROLIZUMAB
     Dosage: CURE 2, 200MG
     Route: 065
     Dates: start: 20210430
  19. OXYCONTIN [Concomitant]
     Active Substance: OXYCODONE HYDROCHLORIDE
  20. CARBOPLATINE [Suspect]
     Active Substance: CARBOPLATIN
     Dosage: CURE 1, 530MG
     Route: 065
     Dates: start: 20210409
  21. VITAMIN B6 [Concomitant]
     Active Substance: PYRIDOXINE HYDROCHLORIDE
  22. METFORMINE [Concomitant]
     Active Substance: METFORMIN HYDROCHLORIDE
  23. DEXAMBUTOL 500 MG, COMPRIME PELLICULE [Concomitant]
     Active Substance: ETHAMBUTOL HYDROCHLORIDE
     Indication: TUBERCULOSIS
     Dosage: 500MG
     Dates: start: 20210420, end: 20210515

REACTIONS (1)
  - Mixed liver injury [Recovering/Resolving]

NARRATIVE: CASE EVENT DATE: 20210514
